FAERS Safety Report 21248979 (Version 2)
Quarter: 2023Q2

REPORT INFORMATION
  Report Type: Report from Study
  Country: BR (occurrence: BR)
  Receive Date: 20220824
  Receipt Date: 20230515
  Transmission Date: 20230721
  Serious: Yes (Death, Other)
  Sender: FDA-Public Use
  Company Number: BR-BRISTOL-MYERS SQUIBB COMPANY-2022-093765

PATIENT
  Age: 81 Year
  Sex: Female
  Weight: 57 kg

DRUGS (7)
  1. ABATACEPT [Suspect]
     Active Substance: ABATACEPT
     Indication: Rheumatoid arthritis
     Dosage: FREQUENCY: WEEK
     Route: 058
     Dates: start: 20220101, end: 20220608
  2. PREDNISONE [Concomitant]
     Active Substance: PREDNISONE
     Indication: Product used for unknown indication
  3. SOLUTIO HYDROXYCHIN [HYDROXYCHLOROQUINE SULFATE] [Concomitant]
     Indication: Product used for unknown indication
  4. PREDNISONE [Concomitant]
     Active Substance: PREDNISONE
     Indication: Rheumatoid arthritis
     Dosage: FREQUENCY: DAY
     Route: 048
     Dates: start: 20160603
  5. HYDROXYCHLOROQUINE SULFATE [Concomitant]
     Active Substance: HYDROXYCHLOROQUINE SULFATE
     Indication: Rheumatoid arthritis
     Dosage: FREQUENCY: DAY
     Route: 048
     Dates: start: 20180821
  6. LEFLUNOMIDE [Concomitant]
     Active Substance: LEFLUNOMIDE
     Indication: Rheumatoid arthritis
     Dosage: FREQUENCY: DAY
     Route: 048
     Dates: start: 20201110
  7. ENTECAVIR [Concomitant]
     Active Substance: ENTECAVIR
     Indication: Hepatitis B
     Route: 048
     Dates: start: 20220321, end: 20220321

REACTIONS (3)
  - Acute respiratory failure [Fatal]
  - Chronic obstructive pulmonary disease [Fatal]
  - Cardiogenic shock [Unknown]

NARRATIVE: CASE EVENT DATE: 20220621
